FAERS Safety Report 7961587-5 (Version None)
Quarter: 2011Q4

REPORT INFORMATION
  Report Type: 
  Country: None (occurrence: None)
  Receive Date: 20111207
  Receipt Date: 20111129
  Transmission Date: 20120403
  Serious: Yes (Hospitalization, Other)
  Sender: FDA-Public Use
  Company Number: US-SANOFI-AVENTIS-2011SA078703

PATIENT
  Age: 56 Year
  Sex: Male
  Weight: 65.9 kg

DRUGS (2)
  1. PLAVIX [Suspect]
     Route: 048
  2. PLAVIX [Suspect]
     Route: 048
     Dates: start: 20080101, end: 20101201

REACTIONS (4)
  - WEIGHT DECREASED [None]
  - CEREBROVASCULAR ACCIDENT [None]
  - ANEURYSM [None]
  - GAIT DISTURBANCE [None]
